FAERS Safety Report 13237867 (Version 1)
Quarter: 2017Q1

REPORT INFORMATION
  Report Type: Spontaneous
  Country: US (occurrence: US)
  Receive Date: 20170216
  Receipt Date: 20170216
  Transmission Date: 20170428
  Serious: Yes (Other)
  Sender: FDA-Public Use
  Company Number: US-JNJCP-30000370359

PATIENT
  Sex: Female

DRUGS (1)
  1. AVEENO DAILY MOISTURIZING [Suspect]
     Active Substance: DIMETHICONE
     Indication: DRY SKIN PROPHYLAXIS
     Dosage: DIME SIZE AMOUNT TWICE PER DAY, IN THE MORNING AND NIGHT.
     Route: 061

REACTIONS (1)
  - Skin cancer [Unknown]
